FAERS Safety Report 25798211 (Version 1)
Quarter: 2025Q3

REPORT INFORMATION
  Report Type: Spontaneous
  Country: EU (occurrence: EU)
  Receive Date: 20250912
  Receipt Date: 20250912
  Transmission Date: 20251020
  Serious: Yes (Death, Hospitalization)
  Sender: MERCK SHARP & DOHME LLC
  Company Number: None

PATIENT
  Age: 60 Year
  Sex: Male

DRUGS (10)
  1. PEMBROLIZUMAB [Suspect]
     Active Substance: PEMBROLIZUMAB
     Indication: Lung carcinoma cell type unspecified stage IV
     Route: 042
     Dates: start: 20250321, end: 20250321
  2. ZOLICO 400 MICROGRAMS TABLETS, 28 tablets [Concomitant]
     Indication: Chemotherapy side effect prophylaxis
     Dosage: 1 CAPSULE EVERY 24 HOURS
     Route: 048
     Dates: start: 20250317
  3. PALEXIA RETARD 25 mg COMPRIMIDOS DE LIBERACION PROLONGADA , 60 comp... [Concomitant]
     Indication: Cancer pain
     Dosage: 1 CAPSULE EVERY 24 HOURS
     Route: 048
     Dates: start: 20250317
  4. CARBOPLATIN [Suspect]
     Active Substance: CARBOPLATIN
     Indication: Lung carcinoma cell type unspecified stage IV
     Route: 042
     Dates: start: 20250321, end: 20250321
  5. PEMETREXED [Suspect]
     Active Substance: PEMETREXED
     Indication: Lung carcinoma cell type unspecified stage IV
     Route: 042
     Dates: start: 20250321, end: 20250321
  6. OPTOVITE B12 1,000 MICROGRAMS SOLUTION FOR INJECTION, 5 ampoules of... [Concomitant]
     Indication: Chemotherapy side effect prophylaxis
     Dosage: 1 INYECTABLE CADA 3 MESES
     Route: 030
     Dates: start: 20250317
  7. XIGDUO 5 MG/1000 MG FILM-COATED TABLETS, 56 tablets [Concomitant]
     Indication: Type 2 diabetes mellitus
     Dosage: 1 CAPSULE EVERY 12 HOURS
     Route: 048
     Dates: start: 20241010
  8. PALEXIA RETARD 50 mg COMPRIMIDOS DE LIBERACION PROLONGADA, 60 compr... [Concomitant]
     Indication: Cancer pain
     Dosage: 1 CAPSULE EVERY 12 HOURS
     Route: 048
     Dates: start: 20250225
  9. DEXAMETASONA ABDRUG 4 MG COMPRIMIDOS, 30 comprimidos [Concomitant]
     Indication: Chemotherapy side effect prophylaxis
     Dosage: 1 CAPSULE EVERY 12 HOURS
     Route: 048
     Dates: start: 20250317
  10. OMEPRAZOL CINFAMED 40 mg CAPSULAS DURAS GASTRORRESISTENTES, 56 c?ps... [Concomitant]
     Dosage: 1 CAPSULE EVERY 24 HOURS
     Route: 048
     Dates: start: 20250317

REACTIONS (3)
  - Pancytopenia [Fatal]
  - Pharyngeal inflammation [Fatal]
  - Rectal haemorrhage [Fatal]

NARRATIVE: CASE EVENT DATE: 20250402
